FAERS Safety Report 8516791 (Version 3)
Quarter: 2014Q2

REPORT INFORMATION
  Report Type: Spontaneous
  Country: US (occurrence: US)
  Receive Date: 20120417
  Receipt Date: 20140428
  Transmission Date: 20141212
  Serious: Yes (Hospitalization)
  Sender: FDA-Public Use
  Company Number: US-US-EMD SERONO, INC.-7125319

PATIENT
  Age: 54 Year
  Sex: Male
  Weight: 118 kg

DRUGS (1)
  1. REBIF [Suspect]
     Indication: PRODUCT USED FOR UNKNOWN INDICATION
     Route: 058
     Dates: start: 20090828

REACTIONS (3)
  - Diverticulitis [Recovering/Resolving]
  - Respiratory tract infection [Recovering/Resolving]
  - Dysuria [Recovering/Resolving]
